FAERS Safety Report 10077336 (Version 2)
Quarter: 2014Q4

REPORT INFORMATION
  Report Type: Spontaneous
  Country: DE (occurrence: None)
  Receive Date: 20140411
  Receipt Date: 20141002
  Transmission Date: 20150528
  Serious: Yes (Other)
  Sender: FDA-Public Use
  Company Number: 2014-19314

PATIENT
  Age: 67 Year
  Sex: Male

DRUGS (5)
  1. ATORVASTATIN (ATORVASTATIN) [Concomitant]
     Active Substance: ATORVASTATIN
  2. EYLEA [Suspect]
     Active Substance: AFLIBERCEPT
     Indication: DIABETIC RETINAL OEDEMA
     Dosage: 5 INJECTIONS, OPHTHALMIC
     Route: 047
     Dates: start: 20131010
  3. METFORMIN [Concomitant]
     Active Substance: METFORMIN HYDROCHLORIDE
  4. INSULIN (INSULIN) [Concomitant]
     Active Substance: INSULIN NOS
  5. EYLEA [Suspect]
     Active Substance: AFLIBERCEPT
     Indication: DIABETIC RETINOPATHY
     Dosage: 5 INJECTIONS, OPHTHALMIC
     Route: 047
     Dates: start: 20131010

REACTIONS (3)
  - Cataract [None]
  - Eye haemorrhage [None]
  - Off label use [None]

NARRATIVE: CASE EVENT DATE: 201403
